FAERS Safety Report 9557046 (Version 1)
Quarter: 2013Q3

REPORT INFORMATION
  Report Type: Spontaneous
  Country: US (occurrence: None)
  Receive Date: 20130724
  Receipt Date: 20130724
  Transmission Date: 20140515
  Serious: Yes (Other)
  Sender: FDA-Public Use
  Company Number: PHEH2013US007769

PATIENT
  Sex: Female
  Weight: 59 kg

DRUGS (5)
  1. GILENYA [Suspect]
     Route: 048
     Dates: start: 20120416
  2. BACLOFEN (BACLOFEN) [Concomitant]
  3. MULTIVITAMINS (ASCORBIC ACID, ERGOCALCIFEROL, FOLIC ACID, NICOTINAMIDE, PANTHENOL, RETINOL, RIBOFLAVIN, THIAMINE HYDROCHLORIDE) [Concomitant]
  4. TEMODAR (TEMOZOLOMIDE) [Concomitant]
  5. ZANAFLEX (TIZANIDINE HYDROCHLORIDE) [Concomitant]

REACTIONS (4)
  - Palpitations [None]
  - Back pain [None]
  - Urinary tract infection [None]
  - Asthenia [None]
